FAERS Safety Report 7028009-2 (Version None)
Quarter: 2010Q4

REPORT INFORMATION
  Report Type: 
  Country: None (occurrence: None)
  Receive Date: 20101005
  Receipt Date: 20100927
  Transmission Date: 20110411
  Serious: Yes (Other)
  Sender: FDA-Public Use
  Company Number: US-US-EMD SERONO, INC.-7019215

PATIENT
  Sex: Male

DRUGS (5)
  1. REBIF [Suspect]
     Indication: PRODUCT USED FOR UNKNOWN INDICATION
     Route: 058
     Dates: start: 20100701
  2. LANTIS INSULIN [Concomitant]
     Indication: TYPE 1 DIABETES MELLITUS
     Dosage: 35 UNITS IN THE MORNING
     Dates: end: 20100101
  3. LANTIS INSULIN [Concomitant]
     Dosage: 45 UNITS IN THE MORNING
     Dates: start: 20100101
  4. IBUPROFEN [Concomitant]
     Indication: PREMEDICATION
  5. INSULIN [Concomitant]
     Indication: TYPE 1 DIABETES MELLITUS

REACTIONS (4)
  - BLOOD GLUCOSE ABNORMAL [None]
  - BLOOD GLUCOSE INCREASED [None]
  - INFLUENZA LIKE ILLNESS [None]
  - ORTHOPEDIC PROCEDURE [None]
